FAERS Safety Report 8472798-7 (Version None)
Quarter: 2012Q2

REPORT INFORMATION
  Report Type: 
  Country: None (occurrence: None)
  Receive Date: 20120622
  Receipt Date: 20120622
  Transmission Date: 20120825
  Serious: No
  Sender: FDA-Public Use
  Company Number: None

PATIENT
  Age: 75 Year
  Sex: Female
  Weight: 80.7403 kg

DRUGS (1)
  1. LISINOPRIL [Suspect]
     Indication: HYPERTENSION
     Dosage: 1 TABLET DAILY DAILY PO
     Route: 048
     Dates: start: 20020119, end: 20120621

REACTIONS (3)
  - URINARY INCONTINENCE [None]
  - COUGH [None]
  - BRONCHITIS [None]
